FAERS Safety Report 12476888 (Version 1)
Quarter: 2016Q2

REPORT INFORMATION
  Report Type: Report from Study
  Country: US (occurrence: US)
  Receive Date: 20160617
  Receipt Date: 20160617
  Transmission Date: 20160815
  Serious: Yes (Life-Threatening)
  Sender: FDA-Public Use
  Company Number: US-PFIZER INC-2016307080

PATIENT
  Age: 49 Year
  Sex: Female
  Weight: 84 kg

DRUGS (6)
  1. ELOXATIN [Suspect]
     Active Substance: OXALIPLATIN
     Indication: COLON CANCER
     Dosage: 85 MG/M2, OVER 2 HOURS ON DAY 1, FREQ: CYCLICAL
     Route: 042
     Dates: start: 20150126
  2. BLINDED PLACEBO [Suspect]
     Active Substance: INVESTIGATIONAL PRODUCT
     Indication: COLON CANCER
     Dosage: UNK, ONCE DAILY
     Route: 048
     Dates: start: 201502
  3. CALCIUM FOLINATE [Suspect]
     Active Substance: LEUCOVORIN CALCIUM
     Indication: COLON CANCER
     Dosage: 400 MG/M2, OVER 2 HOURS ON DAY 1, FREQ: CYCLICAL
     Route: 042
     Dates: start: 20150126
  4. 5-FU /00098801/ [Suspect]
     Active Substance: FLUOROURACIL
     Dosage: 2400 MG/M2, OVER 46-48 HOURS ON DAY 1, FREQ: CYCLICAL
     Route: 042
     Dates: start: 20150126
  5. BLINDED CELECOXIB [Suspect]
     Active Substance: CELECOXIB
     Indication: COLON CANCER
     Dosage: UNK, ONCE DAILY
     Route: 048
     Dates: start: 201502
  6. 5-FU /00098801/ [Suspect]
     Active Substance: FLUOROURACIL
     Indication: COLON CANCER
     Dosage: 400 MG/M2 IVP ON DAY 1 FOLLOWED BY, FREQ: CYCLICAL
     Route: 040
     Dates: start: 20150126

REACTIONS (1)
  - Embolism [Recovering/Resolving]

NARRATIVE: CASE EVENT DATE: 20150406
